FAERS Safety Report 21842841 (Version 1)
Quarter: 2023Q1

REPORT INFORMATION
  Report Type: Spontaneous
  Country: US (occurrence: US)
  Receive Date: 20230110
  Receipt Date: 20230110
  Transmission Date: 20230418
  Serious: No
  Sender: FDA-Public Use
  Company Number: US-BAYER-2023A001973

PATIENT
  Age: 59 Year
  Sex: Female

DRUGS (1)
  1. MIRENA [Suspect]
     Active Substance: LEVONORGESTREL
     Indication: Neoplasm prophylaxis
     Dosage: 20?G/DAY
     Route: 015

REACTIONS (2)
  - Off label use of device [None]
  - Device use issue [None]
